FAERS Safety Report 24242595 (Version 2)
Quarter: 2024Q4

REPORT INFORMATION
  Report Type: Spontaneous
  Country: US (occurrence: US)
  Receive Date: 20240823
  Receipt Date: 20241127
  Transmission Date: 20250115
  Serious: Yes (Other)
  Sender: CSL BEHRING
  Company Number: US-BEH-2024177534

PATIENT
  Sex: Female

DRUGS (14)
  1. HUMATE-P [Suspect]
     Active Substance: HUMAN COAGULATION FACTOR VIII/VON WILLEBRAND FACTOR COMPLEX
     Indication: Von Willebrand^s disease
     Dosage: 2400 - UNK,1824U (+/- 10%  DOSE 1963) INTRAVENOUSLY EVERY 24 HRS IF NEEDED FOR BLEEDING OR PRE SURGI
     Route: 042
  2. HUMATE-P [Suspect]
     Active Substance: HUMAN COAGULATION FACTOR VIII/VON WILLEBRAND FACTOR COMPLEX
     Dosage: 2400 UNIT,1824U (+/- 10%  DOSE 1963) EVERY 24 HRS IF NEEDED FOR BLEEDING OR PRE SURGICAL AS DIRECTED
     Route: 042
  3. AMLODIPINE [Concomitant]
     Active Substance: AMLODIPINE BESYLATE
  4. ATORVASTATIN [Concomitant]
     Active Substance: ATORVASTATIN
     Dosage: 20 MG
  5. EPIPEN [Concomitant]
     Active Substance: EPINEPHRINE
     Dosage: SOA 0.3 MG/O
  6. FLUVOXAMINE [Concomitant]
     Active Substance: FLUVOXAMINE
     Dosage: 100 MG
  7. IRBESARTAN [Concomitant]
     Active Substance: IRBESARTAN
     Dosage: 300 MG
  8. LAMICTAL [Concomitant]
     Active Substance: LAMOTRIGINE
     Dosage: 200 MG
  9. MYRBETRIQ [Concomitant]
     Active Substance: MIRABEGRON
     Dosage: 50 MG
  10. POTASSIUM CHLORIDE [Concomitant]
     Active Substance: POTASSIUM CHLORIDE
  11. PROPRANOLOL HYDROCHLORIDE [Concomitant]
     Active Substance: PROPRANOLOL HYDROCHLORIDE
     Dosage: 80 MG
  12. TRAZODONE HCL [Concomitant]
     Active Substance: TRAZODONE HYDROCHLORIDE
     Dosage: 100 MG
  13. PROLIA [Concomitant]
     Active Substance: DENOSUMAB
     Dosage: 60 MG/ML, PRN
  14. B tab [Concomitant]
     Dosage: 10 MG

REACTIONS (10)
  - Neck surgery [Unknown]
  - Arthralgia [Unknown]
  - Depressed mood [Unknown]
  - Haemorrhagic disorder [Unknown]
  - Renal disorder [Unknown]
  - Contusion [Unknown]
  - Depression [Unknown]
  - Nephrolithiasis [Unknown]
  - Memory impairment [Unknown]
  - Attention deficit hyperactivity disorder [Unknown]
